FAERS Safety Report 11058913 (Version 1)
Quarter: 2015Q2

REPORT INFORMATION
  Report Type: Report from Study
  Country: US (occurrence: None)
  Receive Date: 20150420
  Receipt Date: 20150420
  Transmission Date: 20150821
  Serious: No
  Sender: FDA-Public Use
  Company Number: AEGR001187

PATIENT
  Age: 37 Year
  Sex: Female

DRUGS (1)
  1. JUXTAPID [Suspect]
     Active Substance: LOMITAPIDE MESYLATE
     Indication: HYPERCHOLESTEROLAEMIA
     Route: 048
     Dates: start: 20130709, end: 201312

REACTIONS (5)
  - Therapy cessation [None]
  - Weight increased [None]
  - Influenza like illness [None]
  - Inappropriate schedule of drug administration [None]
  - Off label use [None]

NARRATIVE: CASE EVENT DATE: 20130709
